FAERS Safety Report 8177250-4 (Version None)
Quarter: 2012Q1

REPORT INFORMATION
  Report Type: 
  Country: None (occurrence: None)
  Receive Date: 20120301
  Receipt Date: 20120220
  Transmission Date: 20120608
  Serious: Yes (Death)
  Sender: FDA-Public Use
  Company Number: US-BRISTOL-MYERS SQUIBB COMPANY-16407181

PATIENT
  Age: 69 Year
  Sex: Female

DRUGS (2)
  1. HEPARIN SODIUM [Suspect]
  2. WARFARIN SODIUM [Suspect]

REACTIONS (3)
  - HEPARIN-INDUCED THROMBOCYTOPENIA [None]
  - GANGRENE [None]
  - HAEMORRHAGE INTRACRANIAL [None]
